FAERS Safety Report 19493279 (Version 2)
Quarter: 2021Q4

REPORT INFORMATION
  Report Type: Spontaneous
  Country: US (occurrence: US)
  Receive Date: 20210705
  Receipt Date: 20211029
  Transmission Date: 20220303
  Serious: Yes (Death, Other)
  Sender: FDA-Public Use
  Company Number: US-TEVA-2021-US-1930201

PATIENT
  Age: 84 Year
  Sex: Female
  Weight: 66 kg

DRUGS (6)
  1. VALSARTAN [Suspect]
     Active Substance: VALSARTAN
     Indication: Hypertension
     Dosage: DOSE: 160 MG
     Route: 065
     Dates: start: 20160402, end: 20161219
  2. HYDROCHLOROTHIAZIDE\VALSARTAN [Suspect]
     Active Substance: HYDROCHLOROTHIAZIDE\VALSARTAN
     Indication: Hypertension
     Dosage: DOSE: 80MG/12.5 MG
     Route: 065
     Dates: start: 20140106, end: 20140406
  3. VALSARTAN [Suspect]
     Active Substance: VALSARTAN
     Indication: Hypertension
     Dosage: DOSE: 160 MG
     Route: 065
     Dates: start: 20151112, end: 20160523
  4. VALSARTAN [Suspect]
     Active Substance: VALSARTAN
     Indication: Hypertension
     Dosage: DOSE: 320 MG
     Route: 065
     Dates: start: 20161219, end: 20180718
  5. COUMADIN [Concomitant]
     Active Substance: WARFARIN SODIUM
     Indication: Anticoagulant therapy
     Route: 065
     Dates: start: 200810, end: 201810
  6. LIPITOR [Concomitant]
     Active Substance: ATORVASTATIN CALCIUM
     Indication: Hyperlipidaemia
     Route: 065
     Dates: start: 200810, end: 201810

REACTIONS (2)
  - Gastric cancer stage IV [Fatal]
  - Hepatic cancer [Unknown]
